FAERS Safety Report 16505708 (Version 2)
Quarter: 2019Q3

REPORT INFORMATION
  Report Type: Report from Study
  Country: US (occurrence: US)
  Receive Date: 20190701
  Receipt Date: 20190711
  Transmission Date: 20191004
  Serious: No
  Sender: FDA-Public Use
  Company Number: US-SA-2019SA175896

PATIENT
  Age: 12 Year
  Sex: Female

DRUGS (13)
  1. DUPILUMAB [Suspect]
     Active Substance: DUPILUMAB
     Dosage: 300 MG, QOW
     Route: 058
     Dates: start: 2019
  2. ESCITALOPRAM [Concomitant]
     Active Substance: ESCITALOPRAM OXALATE
  3. FLUTICASONE. [Concomitant]
     Active Substance: FLUTICASONE
  4. TRIAMCINOLONE [Concomitant]
     Active Substance: TRIAMCINOLONE
  5. DUPILUMAB [Suspect]
     Active Substance: DUPILUMAB
     Indication: DERMATITIS ATOPIC
     Dosage: 600 MG, 1X
     Route: 058
     Dates: start: 20190613, end: 20190613
  6. KETOCONAZOLE. [Concomitant]
     Active Substance: KETOCONAZOLE
  7. CEPHALEXINE [Concomitant]
     Active Substance: CEPHALEXIN
  8. DERMA SMOOTH [Concomitant]
  9. FLOVENT HFA [Concomitant]
     Active Substance: FLUTICASONE PROPIONATE
  10. LORATADINE. [Concomitant]
     Active Substance: LORATADINE
  11. ELIDEL [Concomitant]
     Active Substance: PIMECROLIMUS
  12. SANDIMMUNE [Concomitant]
     Active Substance: CYCLOSPORINE
  13. MONTELUKAST [Concomitant]
     Active Substance: MONTELUKAST SODIUM

REACTIONS (3)
  - Dermatitis atopic [Not Recovered/Not Resolved]
  - Conjunctivitis [Unknown]
  - Product use issue [Unknown]

NARRATIVE: CASE EVENT DATE: 201906
